FAERS Safety Report 5865075-1 (Version None)
Quarter: 2008Q3

REPORT INFORMATION
  Report Type: 
  Country: None (occurrence: None)
  Receive Date: 20080829
  Receipt Date: 20080822
  Transmission Date: 20090109
  Serious: Yes (Hospitalization)
  Sender: FDA-Public Use
  Company Number: A0731195A

PATIENT
  Age: 35 Year
  Sex: Female

DRUGS (3)
  1. AVANDIA [Suspect]
     Dosage: 4MG PER DAY
     Route: 048
     Dates: start: 20060101, end: 20070101
  2. METFORMIN HCL [Concomitant]
     Dates: start: 20060301, end: 20060901
  3. DIABETA [Concomitant]
     Dates: start: 20060101, end: 20070101

REACTIONS (4)
  - BLINDNESS [None]
  - CENTRAL PAIN SYNDROME [None]
  - CEREBROVASCULAR ACCIDENT [None]
  - HYPERTENSION [None]
